FAERS Safety Report 19287512 (Version 1)
Quarter: 2021Q2

REPORT INFORMATION
  Report Type: Spontaneous
  Country: CN (occurrence: CN)
  Receive Date: 20210521
  Receipt Date: 20210521
  Transmission Date: 20210717
  Serious: Yes (Other)
  Sender: FDA-Public Use
  Company Number: CN-ROCHE-2830426

PATIENT
  Age: 52 Year
  Sex: Male

DRUGS (9)
  1. HERCEPTIN [Suspect]
     Active Substance: TRASTUZUMAB
     Indication: ADENOCARCINOMA GASTRIC
     Dosage: INITIAL DOSE
     Route: 065
     Dates: start: 20200815
  2. HERCEPTIN [Suspect]
     Active Substance: TRASTUZUMAB
     Dosage: MAINTENANCE DOSE
     Route: 065
  3. CAPECITABINE. [Concomitant]
     Active Substance: CAPECITABINE
     Indication: ADENOCARCINOMA GASTRIC
     Dosage: 4 CYCLES
     Dates: start: 20200815, end: 20201203
  4. CISPLATIN. [Concomitant]
     Active Substance: CISPLATIN
     Indication: ADENOCARCINOMA GASTRIC
     Dosage: 4 CYCLES
     Dates: start: 20200815, end: 20201203
  5. PYROTINIB [Concomitant]
     Active Substance: PYROTINIB
     Indication: ADENOCARCINOMA GASTRIC
     Route: 048
     Dates: start: 20210323
  6. TISLELIZUMAB [Concomitant]
     Active Substance: TISLELIZUMAB
     Indication: ADENOCARCINOMA GASTRIC
     Dosage: 4 CYCLES
     Dates: start: 20201203, end: 20210323
  7. TISLELIZUMAB [Concomitant]
     Active Substance: TISLELIZUMAB
     Dosage: DAY1
     Dates: start: 20210323
  8. PACLITAXEL FOR INJECTION (ALBUMIN BOUND) [Concomitant]
     Active Substance: PACLITAXEL
     Indication: ADENOCARCINOMA GASTRIC
     Dosage: 4 CYCLES
     Dates: start: 20201203, end: 20210323
  9. APATINIB MESYLATE [Concomitant]
     Active Substance: APATINIB
     Indication: ADENOCARCINOMA GASTRIC
     Route: 048
     Dates: start: 20210323

REACTIONS (1)
  - Tumour pseudoprogression [Unknown]

NARRATIVE: CASE EVENT DATE: 20210127
